FAERS Safety Report 10388661 (Version 1)
Quarter: 2014Q3

REPORT INFORMATION
  Report Type: Spontaneous
  Country: AU (occurrence: AU)
  Receive Date: 20140815
  Receipt Date: 20140815
  Transmission Date: 20150326
  Serious: Yes (Other)
  Sender: FDA-Public Use
  Company Number: AU-009507513-1408AUS006883

PATIENT
  Age: 67 Year
  Sex: Male

DRUGS (1)
  1. BCG LIVE [Suspect]
     Active Substance: BACILLUS CALMETTE-GUERIN SUBSTRAIN TICE LIVE ANTIGEN
     Indication: BLADDER TRANSITIONAL CELL CARCINOMA
     Dosage: 3 CYCLES OF 6 WEEKLY INJECTION
     Route: 043

REACTIONS (6)
  - Orchidectomy [Unknown]
  - Infection [Unknown]
  - Bone abscess [Unknown]
  - Psoas abscess [Unknown]
  - Choroid tubercles [Recovering/Resolving]
  - Orchitis [Unknown]
